FAERS Safety Report 6577023-X (Version None)
Quarter: 2010Q1

REPORT INFORMATION
  Report Type: 
  Country: None (occurrence: None)
  Receive Date: 20100210
  Receipt Date: 20100202
  Transmission Date: 20100710
  Serious: Yes (Life-Threatening)
  Sender: FDA-Public Use
  Company Number: JP-BAYER-200914300BYL

PATIENT
  Age: 22 Year
  Sex: Female
  Weight: 42 kg

DRUGS (4)
  1. CIPROXAN-I.V. [Suspect]
     Indication: PNEUMONIA
     Dosage: UNIT DOSE: 300 MG
     Route: 041
     Dates: start: 20091028, end: 20091028
  2. LOXONIN [Suspect]
     Indication: DRUG USE FOR UNKNOWN INDICATION
     Route: 048
  3. ZOSYN [Concomitant]
     Indication: PNEUMONIA
     Dosage: UNIT DOSE: 4.5 G
     Route: 042
     Dates: start: 20091027, end: 20091029
  4. PROPOFOL [Concomitant]
     Indication: SEDATION
     Dosage: UNIT DOSE: 500 MG
     Route: 042
     Dates: start: 20091027, end: 20091028

REACTIONS (2)
  - RESPIRATORY ARREST [None]
  - RESPIRATORY FAILURE [None]
